FAERS Safety Report 9400237 (Version 1)
Quarter: 2013Q3

REPORT INFORMATION
  Report Type: Spontaneous
  Country: US (occurrence: US)
  Receive Date: 20130715
  Receipt Date: 20130715
  Transmission Date: 20140515
  Serious: Yes (Death)
  Sender: FDA-Public Use
  Company Number: US-SANOFI-AVENTIS-2013SA070157

PATIENT
  Age: 60 Year
  Sex: Female

DRUGS (1)
  1. LOVENOX [Suspect]
     Indication: BUNION OPERATION
     Dosage: PRODUCT START DATE: 2 MONTHS AGO  AND PRODUCT END DATE: 1 MONTHS AGO
     Route: 058

REACTIONS (2)
  - Pulmonary embolism [Fatal]
  - Cerebrovascular accident [Fatal]
